FAERS Safety Report 9889829 (Version 3)
Quarter: 2014Q1

REPORT INFORMATION
  Report Type: Spontaneous
  Country: US (occurrence: US)
  Receive Date: 20140212
  Receipt Date: 20140225
  Transmission Date: 20141002
  Serious: Yes (Hospitalization, Other)
  Sender: FDA-Public Use
  Company Number: US-009507513-1402USA004622

PATIENT
  Age: 60 Year
  Sex: Male
  Weight: 87.98 kg

DRUGS (4)
  1. JANUVIA [Suspect]
     Indication: TYPE 2 DIABETES MELLITUS
     Dosage: 100 MG, QD
     Route: 048
     Dates: start: 20080210, end: 20140130
  2. JANUMET [Suspect]
     Dosage: DOSE: 50/1000 (UNIT NOT PROVIDED), BID
     Route: 048
     Dates: start: 20081218, end: 201402
  3. INSULIN [Concomitant]
     Dosage: UNK
  4. METFORMIN [Concomitant]
     Dosage: UNK

REACTIONS (5)
  - Pancreatic carcinoma [Recovered/Resolved]
  - Splenectomy [Recovered/Resolved]
  - Pancreatectomy [Recovered/Resolved]
  - Chemotherapy [Unknown]
  - Overdose [Unknown]
